FAERS Safety Report 4667452-3 (Version None)
Quarter: 2005Q2

REPORT INFORMATION
  Report Type: 
  Country: None (occurrence: None)
  Receive Date: 20050425
  Receipt Date: 20050202
  Transmission Date: 20051028
  Serious: Yes (Other)
  Sender: FDA-Public Use
  Company Number: 16436

PATIENT
  Age: 62 Year
  Sex: Male
  Weight: 94.8018 kg

DRUGS (1)
  1. MITOMYCIN [Suspect]
     Indication: BLADDER CANCER
     Dosage: 40 MG/ONCE/CATHETER VIA URETHR
     Route: 066
     Dates: start: 20041104

REACTIONS (3)
  - CATHETER RELATED INFECTION [None]
  - INJECTION SITE REACTION [None]
  - PAIN [None]
